FAERS Safety Report 15417868 (Version 1)
Quarter: 2018Q3

REPORT INFORMATION
  Report Type: Spontaneous
  Country: AU (occurrence: AU)
  Receive Date: 20180924
  Receipt Date: 20180924
  Transmission Date: 20181010
  Serious: Yes (Death, Other)
  Sender: FDA-Public Use
  Company Number: PHHY2018AU102601

PATIENT
  Age: 45 Year
  Sex: Female
  Weight: 60 kg

DRUGS (1)
  1. MIDOSTAURIN [Suspect]
     Active Substance: MIDOSTAURIN
     Indication: ACUTE MYELOID LEUKAEMIA
     Dosage: 50 MG, BID
     Route: 065
     Dates: end: 20180903

REACTIONS (5)
  - Respiratory syncytial virus infection [Unknown]
  - Bacteraemia [Fatal]
  - Depressed level of consciousness [Unknown]
  - Sepsis [Fatal]
  - Embolic stroke [Unknown]

NARRATIVE: CASE EVENT DATE: 20180818
